FAERS Safety Report 18154862 (Version 1)
Quarter: 2020Q3

REPORT INFORMATION
  Report Type: Other
  Country: CA (occurrence: CA)
  Receive Date: 20200817
  Receipt Date: 20200817
  Transmission Date: 20201103
  Serious: Yes (Life-Threatening, Other)
  Sender: FDA-Public Use
  Company Number: CA-DENTSPLY-2020SCDP000252

PATIENT
  Age: 44 Year
  Sex: Female
  Weight: 99 kg

DRUGS (1)
  1. ORAQIX [Suspect]
     Active Substance: LIDOCAINE\PRILOCAINE
     Indication: DENTAL LOCAL ANAESTHESIA
     Dosage: ORAQIX GEL, 20PK W/COLLAR, QD

REACTIONS (2)
  - Product use complaint [Recovered/Resolved]
  - Anaphylactic reaction [Recovered/Resolved]
